FAERS Safety Report 6704191-9 (Version None)
Quarter: 2010Q2

REPORT INFORMATION
  Report Type: 
  Country: None (occurrence: None)
  Receive Date: 20100428
  Receipt Date: 20100414
  Transmission Date: 20101027
  Serious: Yes (Hospitalization)
  Sender: FDA-Public Use
  Company Number: SPI201000049

PATIENT
  Age: 79 Year
  Sex: Male
  Weight: 82.5 kg

DRUGS (2)
  1. AMITIZA [Suspect]
     Indication: CONSTIPATION
     Dosage: 8 MCG, BID, ORAL
     Route: 048
     Dates: start: 20100121, end: 20100121
  2. AMITIZA [Suspect]
     Indication: IRRITABLE BOWEL SYNDROME
     Dosage: 8 MCG, BID, ORAL
     Route: 048
     Dates: start: 20100121, end: 20100121

REACTIONS (7)
  - COLITIS [None]
  - COLITIS ISCHAEMIC [None]
  - CROHN'S DISEASE [None]
  - DEHYDRATION [None]
  - MUSCLE SPASMS [None]
  - PAIN IN EXTREMITY [None]
  - WEIGHT DECREASED [None]
